FAERS Safety Report 9779291 (Version 2)
Quarter: 2014Q1

REPORT INFORMATION
  Report Type: Spontaneous
  Country: JP (occurrence: JP)
  Receive Date: 20131223
  Receipt Date: 20140108
  Transmission Date: 20141002
  Serious: Yes (Hospitalization)
  Sender: FDA-Public Use
  Company Number: JP-B.I. PHARMACEUTICALS,INC./RIDGEFIELD-2013-BI-43228NB

PATIENT
  Age: 70 Year
  Sex: Male
  Weight: 63 kg

DRUGS (9)
  1. PRAZAXA [Suspect]
     Indication: ATRIAL FIBRILLATION
     Dosage: 220 MG
     Route: 048
     Dates: end: 20131219
  2. ZYLORIC / ALLOPURINOL [Concomitant]
     Dosage: 100 MG
     Route: 048
  3. ACINON / NIZATIDINE [Concomitant]
     Dosage: 150 MG
     Route: 048
  4. FUROSEMIDE / FUROSEMIDE [Concomitant]
     Dosage: 20 MG
     Route: 048
  5. FUROSEMIDE / FUROSEMIDE [Concomitant]
     Dosage: 40 MG
     Route: 048
  6. DIGOSIN / DIGOXIN [Concomitant]
     Dosage: 0.125 MG
     Route: 048
  7. BAYASPIRIN / ASPIRIN [Concomitant]
     Dosage: 100 MG
     Route: 048
  8. PRAVASTATIN NA / PRAVASTATIN SODIUM [Concomitant]
     Dosage: 5 MG
     Route: 048
  9. ARTIST / CARVEDILOL [Concomitant]
     Dosage: 5 MG
     Route: 048

REACTIONS (3)
  - Interstitial lung disease [Not Recovered/Not Resolved]
  - Cardiac failure chronic [Unknown]
  - Dyspnoea [Unknown]
